FAERS Safety Report 6269782-0 (Version None)
Quarter: 2009Q3

REPORT INFORMATION
  Report Type: 
  Country: None (occurrence: None)
  Receive Date: 20090716
  Receipt Date: 20090709
  Transmission Date: 20100115
  Serious: Yes (Other)
  Sender: FDA-Public Use
  Company Number: US-JNJFOC-20090703398

PATIENT
  Sex: Female
  Weight: 79.38 kg

DRUGS (5)
  1. ORTHO EVRA [Suspect]
     Indication: CONTRACEPTION
     Route: 062
  2. OXYCODONE [Concomitant]
     Indication: BREAKTHROUGH PAIN
     Route: 065
  3. METHADONE HCL [Concomitant]
     Indication: PAIN
     Dosage: 2-3 A DAY
     Route: 048
  4. PREDNISONE TAB [Concomitant]
     Indication: HERPES ZOSTER
     Dosage: 2-3 A DAY
     Route: 048
  5. ACYCLOVIR [Concomitant]
     Indication: HERPES ZOSTER
     Dosage: 1 TABLET 5 TIMES A DAY
     Route: 065

REACTIONS (7)
  - ANXIETY [None]
  - DYSPNOEA [None]
  - FEELING ABNORMAL [None]
  - INAPPROPRIATE SCHEDULE OF DRUG ADMINISTRATION [None]
  - OFF LABEL USE [None]
  - PALPITATIONS [None]
  - PRODUCT QUALITY ISSUE [None]
